FAERS Safety Report 9302308 (Version 2)
Quarter: 2013Q3

REPORT INFORMATION
  Report Type: Spontaneous
  Country: US (occurrence: US)
  Receive Date: 20130522
  Receipt Date: 20130717
  Transmission Date: 20140515
  Serious: No
  Sender: FDA-Public Use
  Company Number: US-009507513-1305USA011086

PATIENT
  Age: 57 Year
  Sex: Female
  Weight: 61.22 kg

DRUGS (6)
  1. SAPHRIS [Suspect]
     Indication: MOOD SWINGS
     Dosage: 10 MG, BID
     Route: 060
     Dates: start: 201304
  2. SAPHRIS [Suspect]
     Dosage: 5 MG, QD
     Route: 048
     Dates: start: 2013
  3. ZYPREXA [Concomitant]
  4. DEPAKOTE [Concomitant]
  5. PROPRANOLOL HYDROCHLORIDE [Concomitant]
  6. AMBERGRIS [Concomitant]

REACTIONS (2)
  - Drooling [Recovering/Resolving]
  - Maternal exposure during pregnancy [Unknown]
